FAERS Safety Report 19001861 (Version 2)
Quarter: 2021Q4

REPORT INFORMATION
  Report Type: Spontaneous
  Country: DE (occurrence: DE)
  Receive Date: 20210312
  Receipt Date: 20211119
  Transmission Date: 20220303
  Serious: Yes (Hospitalization, Other)
  Sender: FDA-Public Use
  Company Number: None

PATIENT
  Age: 73 Year
  Sex: Male
  Weight: 96 kg

DRUGS (41)
  1. IMATINIB [Suspect]
     Active Substance: IMATINIB
     Indication: Acute lymphocytic leukaemia
     Dosage: UNK
     Dates: start: 20180116
  2. IMATINIB [Suspect]
     Active Substance: IMATINIB
     Dosage: 200 MG, QD (2X200MG)
     Dates: start: 20200221
  3. CYTARABINE [Suspect]
     Active Substance: CYTARABINE
     Indication: Acute lymphocytic leukaemia
     Dosage: 40 MG (FREQUENCY: DAY 14)
     Dates: start: 20190128, end: 20190128
  4. CYTARABINE [Suspect]
     Active Substance: CYTARABINE
     Dosage: 40 MG (FREQUENCY: DAY 14)
     Dates: start: 20190407, end: 20190407
  5. CYTARABINE [Suspect]
     Active Substance: CYTARABINE
     Dosage: UNK
     Route: 065
     Dates: start: 20180423, end: 2018
  6. CYTARABINE [Suspect]
     Active Substance: CYTARABINE
     Dosage: 500 MG/M2 (ON DAY 1,3,5)
     Dates: start: 20190115, end: 20190119
  7. CYTARABINE [Suspect]
     Active Substance: CYTARABINE
     Dosage: 500 MG/M2 (ON DAY 1,3,5)
     Dates: start: 20190325, end: 20190329
  8. METHOTREXATE [Suspect]
     Active Substance: METHOTREXATE
     Indication: Acute lymphocytic leukaemia
     Dosage: UNK
     Route: 065
     Dates: start: 20180226, end: 2018
  9. METHOTREXATE [Suspect]
     Active Substance: METHOTREXATE
     Dosage: UNK
     Route: 065
     Dates: start: 20181105, end: 2018
  10. METHOTREXATE [Suspect]
     Active Substance: METHOTREXATE
     Dosage: UNK
     Route: 065
  11. METHOTREXATE [Suspect]
     Active Substance: METHOTREXATE
     Dosage: 12 MG (ON DAY 01)
     Route: 065
     Dates: start: 20180111, end: 20180111
  12. DEXAMETHASONE [Suspect]
     Active Substance: DEXAMETHASONE
     Indication: Acute lymphocytic leukaemia
     Dosage: 10 MG/M3 (FREQUENCY DAY 1 TO 5)
     Route: 065
     Dates: start: 20180111, end: 20180115
  13. DEXAMETHASONE [Suspect]
     Active Substance: DEXAMETHASONE
     Route: 065
     Dates: start: 20211003, end: 20211007
  14. CYCLOPHOSPHAMIDE [Suspect]
     Active Substance: CYCLOPHOSPHAMIDE
     Indication: Acute lymphocytic leukaemia
     Dosage: 200 MG/M3 (FREQUENCY DAY 3-5)
     Dates: start: 20180113, end: 20180115
  15. CYCLOPHOSPHAMIDE [Suspect]
     Active Substance: CYCLOPHOSPHAMIDE
     Route: 065
     Dates: start: 20211005, end: 20211007
  16. ASPARAGINASE [Suspect]
     Active Substance: ASPARAGINASE
     Indication: Acute lymphocytic leukaemia
     Dosage: UNK
     Route: 065
     Dates: start: 20181105, end: 2018
  17. ASPARAGINASE [Suspect]
     Active Substance: ASPARAGINASE
     Dosage: UNK
     Route: 065
     Dates: start: 20180226, end: 2018
  18. PONATINIB [Suspect]
     Active Substance: PONATINIB
     Indication: Acute lymphocytic leukaemia
     Dosage: UNK
     Route: 065
     Dates: start: 20200609
  19. PONATINIB [Suspect]
     Active Substance: PONATINIB
     Dosage: UNK
     Route: 065
  20. INOTUZUMAB OZOGAMICIN [Suspect]
     Active Substance: INOTUZUMAB OZOGAMICIN
     Indication: Acute lymphocytic leukaemia
     Dosage: UNK
     Route: 065
     Dates: start: 20210329, end: 202107
  21. BLINATUMOMAB [Suspect]
     Active Substance: BLINATUMOMAB
     Indication: Acute lymphocytic leukaemia
     Dosage: UNK
     Route: 065
     Dates: start: 20211015
  22. BLINATUMOMAB [Suspect]
     Active Substance: BLINATUMOMAB
     Dosage: UNK
     Route: 065
     Dates: start: 20210822, end: 2021
  23. BLINATUMOMAB [Suspect]
     Active Substance: BLINATUMOMAB
     Dosage: UNK
     Route: 065
     Dates: start: 20211011, end: 20211014
  24. BLINATUMOMAB [Suspect]
     Active Substance: BLINATUMOMAB
     Dosage: UNK
     Route: 065
     Dates: start: 20211008, end: 20211010
  25. ALDACTONE [Concomitant]
     Active Substance: SPIRONOLACTONE
     Indication: Product used for unknown indication
     Dosage: 1 DF, QD
  26. ICLUSIG [Concomitant]
     Active Substance: PONATINIB
     Indication: Product used for unknown indication
     Dosage: 1 DF, QD
  27. ALLOPURINOL [Concomitant]
     Active Substance: ALLOPURINOL
     Indication: Product used for unknown indication
     Dosage: 1 DF, QD
  28. LACTULOSE [Concomitant]
     Active Substance: LACTULOSE
     Indication: Product used for unknown indication
     Dosage: 1 ML, TID (667 G/L)
  29. PANTOPRAZOLE SODIUM [Concomitant]
     Active Substance: PANTOPRAZOLE SODIUM
     Indication: Product used for unknown indication
     Dosage: 1 DF, QD
  30. METFORMIN HYDROCHLORIDE [Concomitant]
     Active Substance: METFORMIN HYDROCHLORIDE
     Indication: Product used for unknown indication
     Dosage: 1 DF, BID
     Route: 048
  31. BISOPROLOL [Concomitant]
     Active Substance: BISOPROLOL
     Indication: Product used for unknown indication
     Dosage: 1 DF, QD
  32. TORSEMIDE [Concomitant]
     Active Substance: TORSEMIDE
     Indication: Product used for unknown indication
     Dosage: 1 DF, QD
  33. TORSEMIDE [Concomitant]
     Active Substance: TORSEMIDE
  34. VALSARTAN [Concomitant]
     Active Substance: VALSARTAN
     Indication: Product used for unknown indication
     Dosage: 1 DF, QD
  35. MOVICOL [Concomitant]
     Active Substance: POLYETHYLENE GLYCOL 3350\POTASSIUM CHLORIDE\SODIUM BICARBONATE\SODIUM CHLORIDE
     Indication: Product used for unknown indication
     Dosage: 1 DF, TID (POWDER FOR PREPARATION FOR ORAL USE)
     Route: 048
  36. SIMVASTATIN [Concomitant]
     Active Substance: SIMVASTATIN
     Indication: Product used for unknown indication
     Dosage: 1 DF, QD
  37. PIPERACILLIN SODIUM\TAZOBACTAM SODIUM [Concomitant]
     Active Substance: PIPERACILLIN SODIUM\TAZOBACTAM SODIUM
     Indication: Product used for unknown indication
     Dosage: 1 DF, TID
  38. LANTUS [Concomitant]
     Active Substance: INSULIN GLARGINE
     Indication: Diabetes mellitus
     Route: 058
     Dates: start: 202110, end: 2021
  39. FOLIC ACID [Concomitant]
     Active Substance: FOLIC ACID
     Indication: Product used for unknown indication
  40. MIRTAZAPINE [Concomitant]
     Active Substance: MIRTAZAPINE
     Indication: Product used for unknown indication
  41. SPIRONOLACTONE [Concomitant]
     Active Substance: SPIRONOLACTONE
     Indication: Product used for unknown indication

REACTIONS (43)
  - Escherichia urinary tract infection [Unknown]
  - Acute lymphocytic leukaemia recurrent [Unknown]
  - Enterococcal infection [Recovered/Resolved with Sequelae]
  - Platelet count decreased [Unknown]
  - Acute lymphocytic leukaemia [Unknown]
  - Malignant neoplasm progression [Unknown]
  - Cytokine release syndrome [Unknown]
  - White blood cell count increased [Unknown]
  - Neutropenia [Unknown]
  - Arteriosclerosis coronary artery [Unknown]
  - Pyrexia [Recovering/Resolving]
  - Herpes simplex [Unknown]
  - Pancreatitis chronic [Unknown]
  - Febrile infection [Unknown]
  - Costal cartilage fracture [Unknown]
  - Gastritis [Unknown]
  - Blast cells present [Unknown]
  - Metamyelocyte count increased [Unknown]
  - Prothrombin time prolonged [Unknown]
  - Blood glucose increased [Unknown]
  - Blood chloride increased [Unknown]
  - Blood calcium increased [Unknown]
  - Procalcitonin increased [Unknown]
  - Gamma-glutamyltransferase increased [Unknown]
  - Lymphadenopathy [Unknown]
  - Myelocyte count increased [Unknown]
  - C-reactive protein increased [Unknown]
  - Activated partial thromboplastin time prolonged [Unknown]
  - Serum ferritin increased [Unknown]
  - Haemangioma [Unknown]
  - Weight decreased [Unknown]
  - Blood bilirubin increased [Unknown]
  - Monocyte count decreased [Unknown]
  - Blood lactate dehydrogenase increased [Unknown]
  - Euphoric mood [Unknown]
  - Diaphragmatic disorder [Unknown]
  - Hypotension [Unknown]
  - Lactose intolerance [Unknown]
  - Adrenomegaly [Unknown]
  - Red cell distribution width increased [Unknown]
  - Lymphocyte count decreased [Unknown]
  - Hepatic calcification [Unknown]
  - Neutrophil count decreased [Unknown]

NARRATIVE: CASE EVENT DATE: 20180101
